FAERS Safety Report 8822645 (Version 1)
Quarter: 2012Q4

REPORT INFORMATION
  Report Type: Report from Study
  Country: US (occurrence: US)
  Receive Date: 20121003
  Receipt Date: 20121003
  Transmission Date: 20130627
  Serious: Yes (Hospitalization)
  Sender: FDA-Public Use
  Company Number: US-ROCHE-1088620

PATIENT
  Age: 54 Year
  Sex: Male

DRUGS (3)
  1. PEGASYS [Suspect]
     Indication: HEPATITIS C
     Route: 065
     Dates: start: 20120702
  2. COPEGUS [Suspect]
     Indication: HEPATITIS C
     Route: 065
  3. TELAPREVIR [Suspect]
     Indication: HEPATITIS C
     Route: 065
     Dates: start: 20120702

REACTIONS (6)
  - Headache [Unknown]
  - Skin discolouration [Unknown]
  - Pruritus [Unknown]
  - Loss of consciousness [Unknown]
  - Haematochezia [Recovered/Resolved]
  - Blood count abnormal [Recovered/Resolved]
